FAERS Safety Report 11055467 (Version 1)
Quarter: 2015Q2

REPORT INFORMATION
  Report Type: Spontaneous
  Country: US (occurrence: None)
  Receive Date: 20150421
  Receipt Date: 20150421
  Transmission Date: 20150821
  Serious: No
  Sender: FDA-Public Use
  Company Number: None

PATIENT
  Age: 49 Year
  Sex: Female
  Weight: 53.07 kg

DRUGS (35)
  1. ZIOPTAN [Concomitant]
     Active Substance: TAFLUPROST
  2. VITAMIN D3 [Concomitant]
     Active Substance: CHOLECALCIFEROL
  3. VALARIAN ROOT [Concomitant]
  4. ATARAX [Concomitant]
     Active Substance: HYDROXYZINE\HYDROXYZINE HYDROCHLORIDE
  5. REFRESH OPTIVA ADVANCED [Concomitant]
  6. CALCIUM [Concomitant]
     Active Substance: CALCIUM
  7. VITAMIN E [Concomitant]
     Active Substance: .ALPHA.-TOCOPHEROL
  8. MELATONIN [Concomitant]
     Active Substance: MELATONIN
  9. FISH OIL [Concomitant]
     Active Substance: FISH OIL
  10. TORADOL [Concomitant]
     Active Substance: KETOROLAC TROMETHAMINE
  11. MAGNESIUM OXIDE. [Concomitant]
     Active Substance: MAGNESIUM OXIDE
  12. TAURINE [Concomitant]
     Active Substance: TAURINE
  13. NEXIUM [Concomitant]
     Active Substance: ESOMEPRAZOLE MAGNESIUM
  14. PROPRANOLOL [Concomitant]
     Active Substance: PROPRANOLOL\PROPRANOLOL HYDROCHLORIDE
  15. FLEET NOS [Concomitant]
     Active Substance: BISACODYL OR GLYCERIN OR MINERAL OIL OR SODIUM PHOSPHATE, DIBASIC\SODIUM PHOSPHATE, MONOBASIC
  16. ALAWAY ALLERGY EYE DROPS [Concomitant]
  17. ECHINACEA [Concomitant]
     Active Substance: ECHINACEA, UNSPECIFIED
  18. VITAMIN K2 (MK7) [Concomitant]
  19. CRYSTALLINE VITAMIN C [Concomitant]
  20. WOMEN^S PASSION BOOSTER [Concomitant]
  21. VALIUM [Concomitant]
     Active Substance: DIAZEPAM
  22. ALBUTEROL. [Concomitant]
     Active Substance: ALBUTEROL
  23. RHODIOLA ROSEA [Concomitant]
     Active Substance: HERBALS
  24. ESOMEPRAZOLE MAG [Suspect]
     Active Substance: ESOMEPRAZOLE MAGNESIUM
     Indication: GASTROOESOPHAGEAL REFLUX DISEASE
     Route: 048
     Dates: start: 20150420, end: 20150420
  25. ADVAIR HFA [Concomitant]
     Active Substance: FLUTICASONE PROPIONATE\SALMETEROL XINAFOATE
  26. METAMUCIL [Concomitant]
     Active Substance: PLANTAGO SEED
  27. MAXALT [Concomitant]
     Active Substance: RIZATRIPTAN BENZOATE
  28. MORPHINE [Concomitant]
     Active Substance: MORPHINE
  29. PREPARATION H NOS [Concomitant]
     Active Substance: COCOA BUTTER\PETROLATUM\PHENYLEPHRINE HYDROCHLORIDE\PHENYLEPHRINE HYDROCHLORIDE OR MINERAL OIL
  30. NSI PROBIOTIC 15-35 [Concomitant]
  31. BACLOFEN. [Concomitant]
     Active Substance: BACLOFEN
  32. ATIVAN [Concomitant]
     Active Substance: LORAZEPAM
  33. COMPAZINE [Concomitant]
     Active Substance: PROCHLORPERAZINE MALEATE
  34. COLACE [Concomitant]
     Active Substance: DOCUSATE SODIUM
  35. ALLEGRA-D [Concomitant]
     Active Substance: FEXOFENADINE\PSEUDOEPHEDRINE

REACTIONS (4)
  - Nausea [None]
  - Product quality issue [None]
  - Vomiting [None]
  - Product substitution issue [None]

NARRATIVE: CASE EVENT DATE: 20150420
